FAERS Safety Report 8966260 (Version 2)
Quarter: 2013Q2

REPORT INFORMATION
  Report Type: Spontaneous
  Country: US (occurrence: US)
  Receive Date: 20121217
  Receipt Date: 20130617
  Transmission Date: 20140414
  Serious: Yes (Other)
  Sender: FDA-Public Use
  Company Number: US-AMGEN-USASP2012079691

PATIENT
  Age: 15 Year
  Sex: Male
  Weight: 59 kg

DRUGS (2)
  1. ENBREL [Suspect]
     Indication: JUVENILE IDIOPATHIC ARTHRITIS
     Dosage: 50 MG, QWK
     Route: 058
     Dates: start: 20120530
  2. METHOTREXATE [Concomitant]
     Dosage: 20 UNK, QWK
     Route: 058
     Dates: start: 201202

REACTIONS (3)
  - Depression [Recovered/Resolved]
  - Constipation [Not Recovered/Not Resolved]
  - Peripheral coldness [Not Recovered/Not Resolved]
